FAERS Safety Report 7265759-7 (Version None)
Quarter: 2011Q1

REPORT INFORMATION
  Report Type: 
  Country: None (occurrence: None)
  Receive Date: 20110131
  Receipt Date: 20110118
  Transmission Date: 20110831
  Serious: No
  Sender: FDA-Public Use
  Company Number: DE-ELI_LILLY_AND_COMPANY-DE201012006443

PATIENT
  Sex: Male
  Weight: 82 kg

DRUGS (4)
  1. CHOLESTYRAMINE [Concomitant]
  2. LEVITRA [Concomitant]
     Indication: ERECTILE DYSFUNCTION
  3. VIAGRA [Concomitant]
     Indication: ERECTILE DYSFUNCTION
     Dosage: 50 MG, AS NEEDED
  4. CIALIS [Suspect]
     Indication: ERECTILE DYSFUNCTION
     Dosage: 1 D/F, UNK

REACTIONS (1)
  - NO ADVERSE EVENT [None]
